FAERS Safety Report 17531954 (Version 1)
Quarter: 2020Q1

REPORT INFORMATION
  Report Type: Report from Study
  Country: CN (occurrence: CN)
  Receive Date: 20200312
  Receipt Date: 20200312
  Transmission Date: 20200409
  Serious: Yes (Other)
  Sender: FDA-Public Use
  Company Number: CN-BAYER-2020-037421

PATIENT
  Sex: Female

DRUGS (2)
  1. AZITHROMYCIN ANHYDROUS. [Concomitant]
     Active Substance: AZITHROMYCIN ANHYDROUS
     Indication: CHLAMYDIAL INFECTION
     Dosage: THE FIRST DAY, 0.5G/ TIME, 2 TIMES /D; 2~5 DAYS, 0.25G/ TIME, 2 TIMES/DAY, 3 WEEKS AS A COURSE OF TR
     Route: 048
  2. MOXIFLOXACIN ORAL [Suspect]
     Active Substance: MOXIFLOXACIN
     Indication: CHLAMYDIAL INFECTION
     Dosage: 0.4 G, QD; THREE WEEKS WAS A COURSE OF TREATMENT
     Route: 048

REACTIONS (1)
  - Premature rupture of membranes [None]
